FAERS Safety Report 24194416 (Version 1)
Quarter: 2024Q3

REPORT INFORMATION
  Report Type: Spontaneous
  Country: US (occurrence: None)
  Receive Date: 20240808
  Receipt Date: 20240808
  Transmission Date: 20241017
  Serious: Yes (Death)
  Sender: Public
  Company Number: None

PATIENT
  Age: 32 Month
  Sex: Male
  Weight: 10 kg

DRUGS (1)
  1. PROMACTA [Suspect]
     Active Substance: ELTROMBOPAG OLAMINE
     Indication: Immune thrombocytopenia
     Dosage: DAILY ORAL
     Route: 048
     Dates: start: 20240119, end: 20240512

REACTIONS (16)
  - Vomiting [None]
  - Mental status changes [None]
  - Human rhinovirus test positive [None]
  - Enterovirus test positive [None]
  - Ammonia increased [None]
  - Blood lactic acid increased [None]
  - Transaminases increased [None]
  - Coagulopathy [None]
  - Prothrombin time prolonged [None]
  - Activated partial thromboplastin time prolonged [None]
  - Haemodialysis [None]
  - Neurological decompensation [None]
  - Haemodynamic instability [None]
  - Brain herniation [None]
  - Brain oedema [None]
  - Reye^s syndrome [None]

NARRATIVE: CASE EVENT DATE: 20240512
